FAERS Safety Report 7795885-5 (Version None)
Quarter: 2011Q4

REPORT INFORMATION
  Report Type: 
  Country: None (occurrence: None)
  Receive Date: 20111004
  Receipt Date: 20110922
  Transmission Date: 20120403
  Serious: Yes (Hospitalization)
  Sender: FDA-Public Use
  Company Number: ES-NOVOPROD-335818

PATIENT

DRUGS (11)
  1. PIPERACILLIN AND TAZOBACTAM [Concomitant]
     Dosage: 1.5G+12G
     Route: 042
     Dates: start: 20110602, end: 20110630
  2. OMEPRAZOLE [Concomitant]
     Indication: AMPUTATION
     Dosage: 20 MG, QD
     Route: 048
     Dates: start: 20110608, end: 20110630
  3. ACETAMINOPHEN [Concomitant]
     Dosage: UNK
     Route: 048
     Dates: start: 20110602, end: 20110630
  4. MORPHINE [Concomitant]
     Indication: AMPUTATION
     Dosage: WHEN NECESSARY
     Dates: start: 20110628, end: 20110630
  5. ACETAMINOPHEN [Concomitant]
     Dosage: UNK
     Route: 048
     Dates: start: 20110602, end: 20110630
  6. LEVEMIR [Suspect]
     Indication: PRODUCT USED FOR UNKNOWN INDICATION
     Dosage: 28 U, QD
     Route: 058
     Dates: start: 20110606, end: 20110627
  7. ACETAMINOPHEN [Concomitant]
     Indication: AMPUTATION
     Dosage: UNK
     Route: 042
     Dates: start: 20110602, end: 20110630
  8. CARVEDILOL [Concomitant]
     Indication: AMPUTATION
     Dosage: 12.5 MG, QD
     Route: 048
     Dates: start: 20110602, end: 20110630
  9. ENALAPRIL MALEATE [Concomitant]
     Indication: AMPUTATION
     Dosage: 40 MG, QD
     Route: 048
     Dates: start: 20110602, end: 20110630
  10. METAMIZOLE [Concomitant]
     Indication: AMPUTATION
     Dosage: UNK
     Route: 042
     Dates: start: 20110601, end: 20110630
  11. GELATIN TANNATE [Concomitant]
     Indication: AMPUTATION
     Dosage: 500 MG, QD
     Route: 048
     Dates: start: 20110625, end: 20110630

REACTIONS (1)
  - BONE MARROW FAILURE [None]
